FAERS Safety Report 5642469-0 (Version None)
Quarter: 2008Q1

REPORT INFORMATION
  Report Type: 
  Country: None (occurrence: None)
  Receive Date: 20080228
  Receipt Date: 20080221
  Transmission Date: 20080703
  Serious: Yes (Hospitalization, Disabling, Other)
  Sender: FDA-Public Use
  Company Number: US-JNJFOC-20071104820

PATIENT
  Sex: Male
  Weight: 68.04 kg

DRUGS (2)
  1. LEVAQUIN [Suspect]
     Indication: POSTOPERATIVE WOUND INFECTION
     Route: 048
  2. CELEBREX [Concomitant]
     Route: 048

REACTIONS (2)
  - ROTATOR CUFF SYNDROME [None]
  - TENDON RUPTURE [None]
